FAERS Safety Report 15767524 (Version 1)
Quarter: 2018Q4

REPORT INFORMATION
  Report Type: Spontaneous
  Country: BE (occurrence: BE)
  Receive Date: 20181227
  Receipt Date: 20181227
  Transmission Date: 20190205
  Serious: Yes (Death, Hospitalization, Other)
  Sender: FDA-Public Use
  Company Number: BE-PFM-2018-14901

PATIENT

DRUGS (2)
  1. VINORELBINE [Suspect]
     Active Substance: VINORELBINE\VINORELBINE TARTRATE
     Indication: INVASIVE DUCTAL BREAST CARCINOMA
     Route: 065
  2. MITOMYCIN C [Suspect]
     Active Substance: MITOMYCIN
     Indication: INVASIVE DUCTAL BREAST CARCINOMA
     Dosage: 12 MG, PER SESSION
     Route: 013

REACTIONS (3)
  - Pseudocirrhosis [Recovered/Resolved]
  - Pleural effusion [Unknown]
  - Death [Fatal]
